FAERS Safety Report 8257055-6 (Version None)
Quarter: 2012Q2

REPORT INFORMATION
  Report Type: 
  Country: None (occurrence: None)
  Receive Date: 20120403
  Receipt Date: 20120308
  Transmission Date: 20120825
  Serious: Yes (Hospitalization)
  Sender: FDA-Public Use
  Company Number: JP-GLAXOSMITHKLINE-B0788158A

PATIENT
  Sex: Female

DRUGS (10)
  1. LAMICTAL [Suspect]
     Dosage: 50MG PER DAY
     Route: 048
     Dates: start: 20120203, end: 20120301
  2. ASPIRIN [Concomitant]
     Dosage: 100MG PER DAY
     Route: 048
     Dates: start: 20101023
  3. VALPROATE SODIUM [Concomitant]
     Indication: BIPOLAR DISORDER
     Route: 048
  4. SENNOSIDE [Concomitant]
     Dosage: 12MG PER DAY
     Route: 048
     Dates: start: 20101001
  5. MAGMITT [Concomitant]
     Dosage: 1000MG PER DAY
     Route: 048
     Dates: start: 20101001
  6. CYMBALTA [Concomitant]
     Dosage: 60MG PER DAY
     Route: 048
     Dates: start: 20101001
  7. SEROQUEL [Concomitant]
     Route: 048
     Dates: start: 20101001
  8. LAMICTAL [Suspect]
     Indication: BIPOLAR DISORDER
     Route: 048
     Dates: start: 20120101, end: 20120202
  9. VESICARE [Concomitant]
     Dosage: 5MG PER DAY
     Route: 048
     Dates: start: 20101026
  10. LENDORMIN [Concomitant]
     Dosage: .25MG PER DAY
     Route: 048
     Dates: start: 20101001

REACTIONS (7)
  - STEVENS-JOHNSON SYNDROME [None]
  - ORAL MUCOSA EROSION [None]
  - EPIDERMAL NECROSIS [None]
  - ERYTHEMA [None]
  - ENANTHEMA [None]
  - ORAL CANDIDIASIS [None]
  - SKIN DEGENERATIVE DISORDER [None]
